FAERS Safety Report 24211120 (Version 1)
Quarter: 2024Q3

REPORT INFORMATION
  Report Type: Spontaneous
  Country: US (occurrence: None)
  Receive Date: 20240814
  Receipt Date: 20240814
  Transmission Date: 20241017
  Serious: No
  Sender: Public
  Company Number: None

PATIENT
  Age: 78 Year
  Sex: Female

DRUGS (1)
  1. CAPECITABINE [Suspect]
     Active Substance: CAPECITABINE
     Indication: Colon cancer
     Dosage: 3 TABLETS (1500MG)  BID X14 DAYSON, THEN 7 DAYS OFF ORAL
     Dates: start: 20240708

REACTIONS (5)
  - Fatigue [None]
  - Malaise [None]
  - Somnolence [None]
  - Nausea [None]
  - Muscular weakness [None]

NARRATIVE: CASE EVENT DATE: 20240722
